FAERS Safety Report 6517572-3 (Version None)
Quarter: 2009Q4

REPORT INFORMATION
  Report Type: 
  Country: None (occurrence: None)
  Receive Date: 20091224
  Receipt Date: 20091214
  Transmission Date: 20100525
  Serious: Yes (Hospitalization)
  Sender: FDA-Public Use
  Company Number: JP-ROCHE-675500

PATIENT
  Age: 61 Year
  Sex: Male

DRUGS (2)
  1. COPEGUS [Suspect]
     Indication: HEPATITIS C
     Route: 048
     Dates: start: 20091030, end: 20091213
  2. PEGASYS [Suspect]
     Indication: HEPATITIS C
     Dosage: FREQUENCY: /1 WEEK (S), NOTE: UNCERTAINTY.
     Route: 058
     Dates: start: 20091030, end: 20091207

REACTIONS (1)
  - CARDIAC FAILURE [None]
